FAERS Safety Report 9304885 (Version 1)
Quarter: 2013Q2

REPORT INFORMATION
  Report Type: Spontaneous
  Country: FR (occurrence: FR)
  Receive Date: 20130523
  Receipt Date: 20130523
  Transmission Date: 20140414
  Serious: Yes (Hospitalization)
  Sender: FDA-Public Use
  Company Number: FR-VERTEX PHARMACEUTICALS INC-2013-006325

PATIENT
  Age: 57 Year
  Sex: Female

DRUGS (11)
  1. INCIVO [Suspect]
     Indication: PRODUCT USED FOR UNKNOWN INDICATION
     Route: 048
     Dates: start: 20120827, end: 20120928
  2. PEGASYS [Concomitant]
     Dosage: DOSAGE FORM: UNSPECIFIED
     Route: 058
     Dates: start: 20110101, end: 20121002
  3. COPEGUS [Concomitant]
     Dosage: DOSAGE FORM: UNSPECIFIED
     Route: 048
     Dates: start: 20110101, end: 20121002
  4. STILNOX [Concomitant]
     Dosage: DOSAGE FORM: UNSPECIFIED
     Route: 048
  5. AVLOCARDYL [Concomitant]
     Dosage: DOSAGE FORM: UNSPECIFIED
     Route: 048
  6. NORSET [Concomitant]
     Dosage: DOSAGE FORM: UNSPECIFIED
     Route: 048
  7. DELURSAN [Concomitant]
     Dosage: DOSAGE FORM: UNSPECIFIED
     Route: 048
  8. LEXOMIL [Concomitant]
     Dosage: DOSAGE FORM: UNSPECIFIED
     Route: 048
  9. DEROXAT [Concomitant]
     Dosage: DOSAGE FORM: UNSPECIFIED
     Route: 048
  10. ATARAX [Concomitant]
     Dosage: DOSAGE FORM: UNSPECIFIED
     Route: 048
  11. PARACETAMOL [Concomitant]
     Dosage: DOSAGE FORM: UNSPECIFIED
     Route: 048

REACTIONS (1)
  - Drug reaction with eosinophilia and systemic symptoms [Recovered/Resolved]
